FAERS Safety Report 15961890 (Version 1)
Quarter: 2019Q1

REPORT INFORMATION
  Report Type: Spontaneous
  Country: US (occurrence: US)
  Receive Date: 20190214
  Receipt Date: 20190214
  Transmission Date: 20190417
  Serious: No
  Sender: FDA-Public Use
  Company Number: US-SA-2019SA037482

PATIENT
  Age: 88 Year
  Sex: Female

DRUGS (1)
  1. LANTUS [Suspect]
     Active Substance: INSULIN GLARGINE
     Indication: TYPE 2 DIABETES MELLITUS
     Dosage: 17 U, QD
     Route: 065

REACTIONS (4)
  - Patient dissatisfaction with treatment [Unknown]
  - Blood glucose fluctuation [Unknown]
  - Product measured potency issue [Unknown]
  - Therapeutic response decreased [Unknown]
